FAERS Safety Report 9175005 (Version 1)
Quarter: 2013Q1

REPORT INFORMATION
  Report Type: Spontaneous
  Country: HU (occurrence: HU)
  Receive Date: 20130320
  Receipt Date: 20130320
  Transmission Date: 20140127
  Serious: Yes (Hospitalization)
  Sender: FDA-Public Use
  Company Number: HU-GLAXOSMITHKLINE-B0872141A

PATIENT
  Age: 79 Year
  Sex: Female

DRUGS (3)
  1. CARVEDILOL [Suspect]
     Indication: BLOOD PRESSURE INCREASED
     Dosage: 12.5MG TWICE PER DAY
     Route: 065
  2. IRBESARTAN [Concomitant]
     Dosage: 300MG PER DAY
  3. AMLODIPIN [Concomitant]
     Dosage: 5MG PER DAY

REACTIONS (18)
  - Stress cardiomyopathy [Recovered/Resolved]
  - Withdrawal syndrome [Unknown]
  - Rash [Unknown]
  - Swelling face [Unknown]
  - Hypersensitivity [Unknown]
  - Chest discomfort [Unknown]
  - Hyperhidrosis [Unknown]
  - Dyspnoea [Unknown]
  - Sinus tachycardia [Unknown]
  - Electrocardiogram ST segment [Unknown]
  - Electrocardiogram ST segment depression [Unknown]
  - Cardiac failure [Unknown]
  - Hyperkinesia [Unknown]
  - Subvalvular aortic stenosis [Unknown]
  - Troponin T increased [Unknown]
  - Blood creatine phosphokinase increased [Unknown]
  - Electrocardiogram T wave inversion [Unknown]
  - Electrocardiogram QT prolonged [Unknown]
